FAERS Safety Report 25253711 (Version 2)
Quarter: 2025Q2

REPORT INFORMATION
  Report Type: Spontaneous
  Country: US (occurrence: US)
  Receive Date: 20250430
  Receipt Date: 20250506
  Transmission Date: 20250717
  Serious: No
  Sender: BIOGEN
  Company Number: US-BIOGEN-2025BI01306736

PATIENT
  Sex: Female

DRUGS (1)
  1. TYSABRI [Suspect]
     Active Substance: NATALIZUMAB
     Indication: Multiple sclerosis
     Dosage: ALSO REPORTED TO BE STARTED ON 10-DEC-2021
     Route: 050
     Dates: start: 20080916

REACTIONS (4)
  - Nasopharyngitis [Unknown]
  - Balance disorder [Unknown]
  - Visual impairment [Unknown]
  - Fatigue [Unknown]
